FAERS Safety Report 6669601-4 (Version None)
Quarter: 2010Q2

REPORT INFORMATION
  Report Type: 
  Country: None (occurrence: None)
  Receive Date: 20100406
  Receipt Date: 20100325
  Transmission Date: 20101027
  Serious: Yes (Hospitalization)
  Sender: FDA-Public Use
  Company Number: GB-PFIZER INC-2010038891

PATIENT
  Age: 77 Year
  Sex: Male

DRUGS (1)
  1. MISOPROSTOL, DICLOFENAC SODIUM [Suspect]
     Indication: OSTEOARTHRITIS
     Route: 048

REACTIONS (1)
  - SPINAL COLUMN STENOSIS [None]
